FAERS Safety Report 10610151 (Version 2)
Quarter: 2014Q4

REPORT INFORMATION
  Report Type: Spontaneous
  Country: US (occurrence: US)
  Receive Date: 20141126
  Receipt Date: 20141126
  Transmission Date: 20150529
  Serious: Yes (Hospitalization)
  Sender: FDA-Public Use
  Company Number: US-MALLINCKRODT-T201305194

PATIENT
  Age: 49 Year
  Sex: Male
  Weight: 110.2 kg

DRUGS (9)
  1. BUPIVACAINE [Suspect]
     Active Substance: BUPIVACAINE
     Dosage: 1.427 MG/DAY
     Route: 037
     Dates: start: 20131212
  2. GABLOFEN [Suspect]
     Active Substance: BACLOFEN
     Dosage: 71.33 MCG/DAY
     Route: 037
     Dates: start: 20131212
  3. HYDROMORPHONE [Suspect]
     Active Substance: HYDROMORPHONE
     Indication: PRODUCT USED FOR UNKNOWN INDICATION
     Dosage: 5.707 MG/DAY
     Route: 037
  4. FENTANYL. [Suspect]
     Active Substance: FENTANYL
     Dosage: 71.33 MCG/DAY
     Route: 037
     Dates: start: 20131212
  5. GABLOFEN [Suspect]
     Active Substance: BACLOFEN
     Indication: POST LAMINECTOMY SYNDROME
     Dosage: 142.66 MCG/DAY
     Route: 037
  6. HYDROMORPHONE [Suspect]
     Active Substance: HYDROMORPHONE
     Dosage: 2.853 MG/DAY
     Route: 037
     Dates: start: 20131212
  7. FENTANYL. [Suspect]
     Active Substance: FENTANYL
     Indication: PRODUCT USED FOR UNKNOWN INDICATION
     Dosage: 142.66 MCG/DAY
     Route: 037
  8. BUPIVACAINE [Suspect]
     Active Substance: BUPIVACAINE
     Indication: PRODUCT USED FOR UNKNOWN INDICATION
     Dosage: 2.853 MG/DAY
     Route: 037
  9. CLONIDINE. [Suspect]
     Active Substance: CLONIDINE
     Indication: PRODUCT USED FOR UNKNOWN INDICATION
     Dosage: UNK
     Route: 037

REACTIONS (3)
  - Pain [Recovered/Resolved]
  - Muscle spasticity [Recovered/Resolved]
  - Device breakage [Recovered/Resolved]

NARRATIVE: CASE EVENT DATE: 20131004
